FAERS Safety Report 15925346 (Version 1)
Quarter: 2019Q1

REPORT INFORMATION
  Report Type: Spontaneous
  Country: US (occurrence: US)
  Receive Date: 20190206
  Receipt Date: 20190206
  Transmission Date: 20190417
  Serious: No
  Sender: FDA-Public Use
  Company Number: US-PFIZER INC-2019053953

PATIENT
  Age: 10 Year
  Sex: Male

DRUGS (1)
  1. GENOTROPIN [Suspect]
     Active Substance: SOMATROPIN
     Dosage: 1.8 MG, UNK, 6 DAYS A WEEK
     Dates: start: 20030611

REACTIONS (3)
  - Blood immunoglobulin E increased [Unknown]
  - Radioallergosorbent test positive [Unknown]
  - Product dose omission [Unknown]
